FAERS Safety Report 20129922 (Version 1)
Quarter: 2021Q4

REPORT INFORMATION
  Report Type: Spontaneous
  Country: DE (occurrence: DE)
  Receive Date: 20211130
  Receipt Date: 20211130
  Transmission Date: 20220303
  Serious: Yes (Hospitalization)
  Sender: FDA-Public Use
  Company Number: DE-KRKA-DE2021K12939SPO

PATIENT
  Age: 2 Year
  Sex: Male
  Weight: 13 kg

DRUGS (3)
  1. TORSEMIDE [Suspect]
     Active Substance: TORSEMIDE
     Indication: Product used for unknown indication
     Dosage: 200 MILLIGRAM (200 MG, SINGLE DOSE)
     Route: 048
     Dates: start: 20210925, end: 20210925
  2. ENALAPRIL MALEATE [Suspect]
     Active Substance: ENALAPRIL MALEATE
     Indication: Product used for unknown indication
     Dosage: 10 MILLIGRAM (10 MG, SINGLE DOSE)
     Route: 048
     Dates: start: 20210925, end: 20210925
  3. CALCIUM ACETATE [Suspect]
     Active Substance: CALCIUM ACETATE
     Indication: Product used for unknown indication
     Dosage: 700 MILLIGRAM (700 MG, SINGLE DOSE)
     Route: 048
     Dates: start: 20210925, end: 20210925

REACTIONS (5)
  - Crying [Recovered/Resolved]
  - Heart rate increased [Recovered/Resolved]
  - Fatigue [Recovered/Resolved]
  - Accidental exposure to product by child [Recovered/Resolved]
  - Blood pressure decreased [Recovered/Resolved]

NARRATIVE: CASE EVENT DATE: 20210925
